FAERS Safety Report 15700841 (Version 1)
Quarter: 2018Q4

REPORT INFORMATION
  Report Type: Spontaneous
  Country: US (occurrence: GB)
  Receive Date: 20181207
  Receipt Date: 20181207
  Transmission Date: 20190205
  Serious: Yes (Hospitalization, Other)
  Sender: FDA-Public Use
  Company Number: US-BAYER-2018-221692

PATIENT
  Age: 50 Year
  Sex: Female

DRUGS (2)
  1. MIRENA [Suspect]
     Active Substance: LEVONORGESTREL
  2. MIRENA [Suspect]
     Active Substance: LEVONORGESTREL
     Dosage: 20 MCG/24HR, CONT
     Route: 015
     Dates: start: 201503

REACTIONS (15)
  - Pharyngeal oedema [None]
  - Alopecia [None]
  - Folate deficiency [None]
  - Chest pain [None]
  - Sleep apnoea syndrome [None]
  - Depressed mood [None]
  - Pelvic pain [None]
  - Hypoaesthesia [None]
  - Anxiety [None]
  - Poor quality sleep [None]
  - Vasodilatation [None]
  - Vitamin D decreased [None]
  - Paraesthesia [None]
  - Throat tightness [None]
  - Throat irritation [None]
